FAERS Safety Report 18467779 (Version 1)
Quarter: 2020Q4

REPORT INFORMATION
  Report Type: Spontaneous
  Country: US (occurrence: US)
  Receive Date: 20201104
  Receipt Date: 20201104
  Transmission Date: 20210114
  Serious: Yes (Other)
  Sender: FDA-Public Use
  Company Number: None

PATIENT
  Age: 48 Year
  Sex: Female
  Weight: 52 kg

DRUGS (2)
  1. CLONAZEPAM (CLONAZEPAM 0.5MG TAB) [Suspect]
     Active Substance: CLONAZEPAM
     Indication: INSOMNIA
  2. CLONAZEPAM (CLONAZEPAM 0.5MG TAB) [Suspect]
     Active Substance: CLONAZEPAM
     Indication: ANXIETY

REACTIONS (2)
  - Depression [None]
  - Sedation [None]

NARRATIVE: CASE EVENT DATE: 20200625
